FAERS Safety Report 4698136-3 (Version None)
Quarter: 2005Q2

REPORT INFORMATION
  Report Type: 
  Country: None (occurrence: None)
  Receive Date: 20050621
  Receipt Date: 20050607
  Transmission Date: 20051028
  Serious: Yes (Other)
  Sender: FDA-Public Use
  Company Number: 2005085193

PATIENT
  Age: 56 Year
  Sex: Male
  Weight: 87.9978 kg

DRUGS (2)
  1. VIAGRA [Suspect]
     Indication: ERECTILE DYSFUNCTION
     Dosage: 25 MG (25 MG, AS NECESSARY), ORAL
     Route: 048
     Dates: start: 20030101
  2. MULTIVITAMIN [Concomitant]

REACTIONS (7)
  - ACROCHORDON [None]
  - BLINDNESS UNILATERAL [None]
  - EYE PAIN [None]
  - HYPERTENSION [None]
  - PHOTOPHOBIA [None]
  - VISUAL ACUITY REDUCED [None]
  - VITREOUS FLOATERS [None]
